FAERS Safety Report 5195155-8 (Version None)
Quarter: 2006Q4

REPORT INFORMATION
  Report Type: 
  Country: None (occurrence: None)
  Receive Date: 20061229
  Receipt Date: 20061223
  Transmission Date: 20070319
  Serious: Yes (Hospitalization)
  Sender: FDA-Public Use
  Company Number: CA-BOEHRINGER INGELHEIM PHARMACEUTICALS, INC.-2006-CN-00789CN

PATIENT
  Sex: Female

DRUGS (1)
  1. MICARDIS [Suspect]

REACTIONS (3)
  - ABDOMINAL NEOPLASM [None]
  - DYSPHONIA [None]
  - MALAISE [None]
